FAERS Safety Report 14006512 (Version 2)
Quarter: 2017Q4

REPORT INFORMATION
  Report Type: Spontaneous
  Country: JP (occurrence: JP)
  Receive Date: 20170925
  Receipt Date: 20171012
  Transmission Date: 20180321
  Serious: Yes (Life-Threatening, Other)
  Sender: FDA-Public Use
  Company Number: JP-ABBVIE-17K-087-2108052-00

PATIENT
  Age: 0 Day
  Sex: Male
  Weight: 3.35 kg

DRUGS (1)
  1. HUMIRA [Suspect]
     Active Substance: ADALIMUMAB
     Indication: MATERNAL EXPOSURE TIMING UNSPECIFIED
     Route: 064

REACTIONS (6)
  - Foetal exposure during pregnancy [Unknown]
  - Foetal heart rate abnormal [Unknown]
  - Neonatal asphyxia [Recovered/Resolved with Sequelae]
  - Seizure [Unknown]
  - Foetal heart rate decreased [Recovered/Resolved with Sequelae]
  - Unresponsive to stimuli [Unknown]

NARRATIVE: CASE EVENT DATE: 20170504
